FAERS Safety Report 20016590 (Version 1)
Quarter: 2021Q4

REPORT INFORMATION
  Report Type: Spontaneous
  Country: US (occurrence: None)
  Receive Date: 20211104
  Receipt Date: 20211104
  Transmission Date: 20220303
  Serious: No
  Sender: FDA-Public Use
  Company Number: None

PATIENT

DRUGS (2)
  1. PRASUGREL [Suspect]
     Active Substance: PRASUGREL
  2. CLOPIDOGREL BISULFATE [Suspect]
     Active Substance: CLOPIDOGREL BISULFATE

REACTIONS (3)
  - Product prescribing error [None]
  - Duplicate therapy error [None]
  - Drug monitoring procedure not performed [None]
